FAERS Safety Report 6239736-9 (Version None)
Quarter: 2009Q2

REPORT INFORMATION
  Report Type: 
  Country: None (occurrence: None)
  Receive Date: 20090619
  Receipt Date: 20090608
  Transmission Date: 20091009
  Serious: Yes (Hospitalization)
  Sender: FDA-Public Use
  Company Number: ADR3962009

PATIENT
  Age: 65 Year
  Sex: Female

DRUGS (8)
  1. RAMIPRIL [Suspect]
     Indication: HYPERTENSION
     Dosage: 10 MG
     Route: 048
  2. CIPROFLOXACIN HCL [Concomitant]
  3. DIGITOXIN [Concomitant]
  4. EUTHYROX 100 (LEVOTHYROXINE SODIUM) [Concomitant]
  5. FALITHROM ^HEXAL^ (PHENPROCOUMON) [Concomitant]
  6. HYDROCHLOROTHIAZIDE [Concomitant]
  7. METOHEXAL (METOPROLOL TARTRATE) [Concomitant]
  8. TORSEMIDE [Concomitant]

REACTIONS (3)
  - ATRIAL FIBRILLATION [None]
  - DRUG INTERACTION [None]
  - SINOATRIAL BLOCK [None]
